FAERS Safety Report 7684884-X (Version None)
Quarter: 2011Q3

REPORT INFORMATION
  Report Type: 
  Country: None (occurrence: None)
  Receive Date: 20110711
  Receipt Date: 20110513
  Transmission Date: 20111222
  Serious: Yes (Other)
  Sender: FDA-Public Use
  Company Number: IPC201105-001511

PATIENT

DRUGS (2)
  1. REGLAN [Suspect]
     Dates: start: 19990701, end: 20091001
  2. METOCLOPRAMIDE HYDROCHLORIDE [Suspect]
     Dates: start: 19990701, end: 20091001

REACTIONS (3)
  - EXTRAPYRAMIDAL DISORDER [None]
  - PARKINSONISM [None]
  - TREMOR [None]
